FAERS Safety Report 9461324 (Version 1)
Quarter: 2013Q3

REPORT INFORMATION
  Report Type: Spontaneous
  Country: US (occurrence: US)
  Receive Date: 20130816
  Receipt Date: 20130816
  Transmission Date: 20140515
  Serious: No
  Sender: FDA-Public Use
  Company Number: US-PFIZER INC-2013237382

PATIENT
  Age: 28 Year
  Sex: Female
  Weight: 65.76 kg

DRUGS (7)
  1. GABAPENTIN [Suspect]
     Indication: MIGRAINE
     Dosage: UNK
     Dates: start: 2013
  2. NEXIUM [Concomitant]
     Indication: GASTROOESOPHAGEAL REFLUX DISEASE
     Dosage: UNK
  3. NALTREXONE [Concomitant]
     Dosage: UNK
  4. VICODIN [Concomitant]
     Dosage: UNK
  5. LEXAPRO [Concomitant]
     Indication: DEPRESSION
     Dosage: UNK
  6. SPRINTEC [Concomitant]
     Indication: CONTRACEPTION
     Dosage: UNK
  7. XYREM [Concomitant]
     Indication: HYPERSOMNIA
     Dosage: UNK

REACTIONS (2)
  - Off label use [Not Recovered/Not Resolved]
  - Drug ineffective for unapproved indication [Unknown]
